FAERS Safety Report 16630048 (Version 2)
Quarter: 2019Q3

REPORT INFORMATION
  Report Type: Report from Study
  Country: US (occurrence: US)
  Receive Date: 20190725
  Receipt Date: 20190903
  Transmission Date: 20191004
  Serious: Yes (Other)
  Sender: FDA-Public Use
  Company Number: PHEH2019US030475

PATIENT
  Age: 56 Year
  Sex: Male

DRUGS (1)
  1. SIGNIFOR LAR [Suspect]
     Active Substance: PASIREOTIDE
     Indication: PRODUCT USED FOR UNKNOWN INDICATION
     Dosage: 60, MG (ONCE EVERY 28 DAYS)
     Route: 030

REACTIONS (5)
  - Device leakage [Unknown]
  - Loss of consciousness [Unknown]
  - Diabetes mellitus [Unknown]
  - Dehydration [Unknown]
  - Blood glucose decreased [Unknown]

NARRATIVE: CASE EVENT DATE: 20190719
